FAERS Safety Report 19910950 (Version 1)
Quarter: 2021Q4

REPORT INFORMATION
  Report Type: Spontaneous
  Country: IN (occurrence: IN)
  Receive Date: 20211004
  Receipt Date: 20211004
  Transmission Date: 20220303
  Serious: Yes (Other)
  Sender: FDA-Public Use
  Company Number: IN-LUPIN PHARMACEUTICALS INC.-2021-18646

PATIENT
  Weight: 46 kg

DRUGS (1)
  1. HYDROXYCHLOROQUINE [Suspect]
     Active Substance: HYDROXYCHLOROQUINE
     Indication: Systemic lupus erythematosus
     Dosage: 4.6 MILLIGRAM/KILOGRAM, QD (AT A MEAN DAILY DOSE OF 4.6 MG/KG OF REAL WEIGHT; CUMULATIVE DOSE OF 656
     Route: 065

REACTIONS (1)
  - Retinopathy [Unknown]
